FAERS Safety Report 5441189-5 (Version None)
Quarter: 2007Q3

REPORT INFORMATION
  Report Type: 
  Country: None (occurrence: None)
  Receive Date: 20070901
  Receipt Date: 20070821
  Transmission Date: 20080115
  Serious: Yes (Hospitalization)
  Sender: FDA-Public Use
  Company Number: FR-PFIZER INC-2007070015

PATIENT
  Sex: Female

DRUGS (9)
  1. ZOLOFT [Suspect]
     Route: 048
     Dates: start: 20070610, end: 20070611
  2. ROCEPHIN [Concomitant]
     Route: 048
  3. FOSAMAX [Concomitant]
  4. COLECALCIFEROL [Concomitant]
  5. PIASCLEDINE [Concomitant]
  6. GINKOR FORT [Concomitant]
  7. BROMAZEPAM [Concomitant]
  8. ZOLPIDEM TARTRATE [Concomitant]
  9. CALCIUM CARBONATE [Concomitant]

REACTIONS (4)
  - CONFUSIONAL STATE [None]
  - HYPOCHLORAEMIA [None]
  - HYPONATRAEMIA [None]
  - TACHYCARDIA [None]
